FAERS Safety Report 17891887 (Version 1)
Quarter: 2020Q2

REPORT INFORMATION
  Report Type: Spontaneous
  Country: SA (occurrence: SA)
  Receive Date: 20200612
  Receipt Date: 20200612
  Transmission Date: 20200714
  Serious: Yes (Death, Other)
  Sender: FDA-Public Use
  Company Number: SA-AMGEN-SAUSP2020091382

PATIENT
  Age: 35 Year
  Sex: Female

DRUGS (7)
  1. FUROSEMIDE. [Concomitant]
     Active Substance: FUROSEMIDE
  2. CALCITONIN [Concomitant]
     Active Substance: CALCITONIN
     Dosage: 200 INTERNATIONAL UNIT, Q12H
  3. OXYGEN. [Concomitant]
     Active Substance: OXYGEN
  4. HEPARIN [Concomitant]
     Active Substance: HEPARIN SODIUM
  5. XGEVA [Suspect]
     Active Substance: DENOSUMAB
     Indication: HYPERCALCAEMIA OF MALIGNANCY
     Dosage: UNK
     Route: 065
  6. CALCITONIN [Concomitant]
     Active Substance: CALCITONIN
     Dosage: 400 INTERNATIONAL UNIT, BID
  7. METHYLPREDNISOLONE. [Concomitant]
     Active Substance: METHYLPREDNISOLONE
     Dosage: 1 GRAM, QD

REACTIONS (6)
  - Deep vein thrombosis [Unknown]
  - Compartment syndrome [Unknown]
  - Shock [Fatal]
  - Pulmonary oedema [Unknown]
  - Peripheral artery occlusion [Unknown]
  - Multiple organ dysfunction syndrome [Fatal]
